FAERS Safety Report 5422530-6 (Version None)
Quarter: 2007Q3

REPORT INFORMATION
  Report Type: 
  Country: None (occurrence: None)
  Receive Date: 20070822
  Receipt Date: 20070813
  Transmission Date: 20080115
  Serious: Yes (Hospitalization)
  Sender: FDA-Public Use
  Company Number: US-SANOFI-SYNTHELABO-A03200705077

PATIENT
  Sex: Male

DRUGS (10)
  1. ARANESP [Concomitant]
     Route: 065
  2. CARAFATE [Concomitant]
     Route: 048
  3. POTASSIUM CHLORIDE [Concomitant]
     Dosage: 20 MG EQ QD
     Route: 065
  4. PROTONIX [Concomitant]
     Route: 048
  5. PRINIVIL [Concomitant]
     Route: 048
  6. NEURONTIN [Concomitant]
     Route: 048
  7. LASIX [Concomitant]
     Route: 048
  8. NOVOLOG [Concomitant]
     Dosage: 10 UNITS IN THE AM AND 14 UNITS HS
     Route: 065
  9. ELIGARD [Suspect]
     Indication: PROSTATE CANCER
     Dosage: 45 MG EVERY 6 MONTHS
     Route: 058
     Dates: start: 20070405, end: 20070405
  10. LEVEMIR [Concomitant]
     Dosage: UNK
     Route: 065

REACTIONS (4)
  - BLOOD GLUCOSE DECREASED [None]
  - CONDITION AGGRAVATED [None]
  - DIABETES MELLITUS INADEQUATE CONTROL [None]
  - DIABETIC COMA [None]
